FAERS Safety Report 6357793-6 (Version None)
Quarter: 2009Q3

REPORT INFORMATION
  Report Type: 
  Country: None (occurrence: None)
  Receive Date: 20090911
  Receipt Date: 20090902
  Transmission Date: 20100115
  Serious: Yes (Other)
  Sender: FDA-Public Use
  Company Number: 2009010110

PATIENT
  Age: 44 Year
  Sex: Male

DRUGS (2)
  1. MODAFINIL [Suspect]
     Indication: FATIGUE
     Dates: start: 20090720, end: 20090720
  2. MOGADON (NITRAZEPAM) [Concomitant]

REACTIONS (14)
  - ARTHRALGIA [None]
  - CHOKING SENSATION [None]
  - COGNITIVE DISORDER [None]
  - DYSPNOEA [None]
  - FEELING COLD [None]
  - IMPATIENCE [None]
  - IRRITABILITY [None]
  - NAUSEA [None]
  - PARANOIA [None]
  - POLYURIA [None]
  - READING DISORDER [None]
  - UNEVALUABLE EVENT [None]
  - URINE OUTPUT INCREASED [None]
  - VISUAL ACUITY REDUCED [None]
